FAERS Safety Report 20517779 (Version 1)
Quarter: 2022Q1

REPORT INFORMATION
  Report Type: Other
  Country: GB (occurrence: None)
  Receive Date: 20220225
  Receipt Date: 20220225
  Transmission Date: 20220423
  Serious: Yes (Other)
  Sender: FDA-Public Use
  Company Number: GB-Navinta LLC-000222

PATIENT
  Sex: Male

DRUGS (2)
  1. TRIENTINE [Suspect]
     Active Substance: TRIENTINE
     Indication: Hypertrophic cardiomyopathy
     Dosage: 600 MG, CAPSULE, TWICE DAILY
  2. TRIENTINE [Suspect]
     Active Substance: TRIENTINE
     Indication: Hypertrophic cardiomyopathy
     Dosage: 300 MG, CAPSULE, TWICE DAILY

REACTIONS (1)
  - Oesophageal ulcer [Unknown]
